FAERS Safety Report 5028440-0 (Version None)
Quarter: 2006Q2

REPORT INFORMATION
  Report Type: 
  Country: None (occurrence: None)
  Receive Date: 20060617
  Receipt Date: 20060609
  Transmission Date: 20061013
  Serious: Yes (Hospitalization)
  Sender: FDA-Public Use
  Company Number: US-GLAXOSMITHKLINE-A0608700A

PATIENT
  Age: 75 Year
  Sex: Male
  Weight: 57.9 kg

DRUGS (4)
  1. TOPOTECAN [Suspect]
     Dosage: 1.15MGM2 PER DAY
     Route: 048
     Dates: start: 20060509
  2. RADIATION [Suspect]
  3. MICARDIS [Concomitant]
     Indication: HYPERTENSION
     Dosage: 40MG PER DAY
     Route: 048
     Dates: start: 20060322
  4. MULTI-VITAMIN [Concomitant]
     Dosage: 1TAB PER DAY
     Route: 048
     Dates: start: 20060328

REACTIONS (8)
  - ATRIAL FIBRILLATION [None]
  - BLOOD CREATINE PHOSPHOKINASE MB INCREASED [None]
  - BLOOD PRESSURE INCREASED [None]
  - CARDIAC ENZYMES INCREASED [None]
  - DIZZINESS [None]
  - ELECTROCARDIOGRAM ST SEGMENT ELEVATION [None]
  - HEART RATE INCREASED [None]
  - MYOCARDIAL INFARCTION [None]
